FAERS Safety Report 10763872 (Version 2)
Quarter: 2015Q1

REPORT INFORMATION
  Report Type: Report from Study
  Country: US (occurrence: US)
  Receive Date: 20150204
  Receipt Date: 20150303
  Transmission Date: 20150721
  Serious: Yes (Other)
  Sender: FDA-Public Use
  Company Number: US-BAXTER-2015BAX006165

PATIENT
  Age: 59 Year
  Sex: Female
  Weight: 56.8 kg

DRUGS (1)
  1. GAMMAGARD LIQUID [Suspect]
     Active Substance: HUMAN IMMUNOGLOBULIN G
     Indication: SELECTIVE IGG SUBCLASS DEFICIENCY
     Route: 058
     Dates: start: 201311

REACTIONS (2)
  - Contusion [Unknown]
  - Onychomycosis [Recovered/Resolved]

NARRATIVE: CASE EVENT DATE: 201311
